FAERS Safety Report 10223819 (Version 1)
Quarter: 2014Q2

REPORT INFORMATION
  Report Type: Spontaneous
  Country: US (occurrence: US)
  Receive Date: 20140609
  Receipt Date: 20140609
  Transmission Date: 20141212
  Serious: No
  Sender: FDA-Public Use
  Company Number: US-009507513-1406USA002479

PATIENT
  Sex: Female

DRUGS (1)
  1. ISENTRESS [Suspect]
     Indication: HIV INFECTION
     Dosage: 400 MG, TWICE DAILY
     Route: 048
     Dates: start: 20140520, end: 20140603

REACTIONS (2)
  - Balance disorder [Unknown]
  - Depression [Unknown]
